FAERS Safety Report 5122198-2 (Version None)
Quarter: 2006Q4

REPORT INFORMATION
  Report Type: 
  Country: None (occurrence: None)
  Receive Date: 20061006
  Receipt Date: 20060621
  Transmission Date: 20070319
  Serious: Yes (Hospitalization, Other)
  Sender: FDA-Public Use
  Company Number: MX-ABBOTT-06P-107-0336704-00

PATIENT
  Sex: Male
  Weight: 44.5 kg

DRUGS (13)
  1. KALETRA [Suspect]
     Indication: HIV INFECTION
     Route: 048
     Dates: start: 20060610
  2. BACTRIM [Concomitant]
     Indication: PROPHYLAXIS
     Route: 048
     Dates: start: 20060604, end: 20060618
  3. BACTRIM [Concomitant]
     Route: 048
     Dates: start: 20060618, end: 20060705
  4. AZYTHORMICINE [Concomitant]
     Indication: PROPHYLAXIS
     Route: 048
     Dates: start: 20060605
  5. OMEPRAZOLE [Concomitant]
     Indication: GASTROOESOPHAGEAL REFLUX DISEASE
     Route: 048
     Dates: start: 20060626
  6. ITRACONAZOLE [Concomitant]
     Indication: PROPHYLAXIS
     Route: 048
     Dates: start: 20060626
  7. CEFTRIAXONE [Concomitant]
     Indication: PNEUMONIA
     Route: 042
     Dates: start: 20060617, end: 20060626
  8. AMIKACIN [Concomitant]
     Indication: PNEUMONIA
     Route: 042
     Dates: start: 20060617, end: 20060619
  9. PREDNISONE TAB [Concomitant]
     Indication: PNEUMONIA
     Route: 042
     Dates: start: 20060617, end: 20060626
  10. PREDNISONE TAB [Concomitant]
     Route: 048
     Dates: start: 20060626, end: 20060715
  11. CLARITHROMYCIN [Concomitant]
     Indication: PROPHYLAXIS
     Route: 048
     Dates: start: 20060626, end: 20060705
  12. BACTRIM [Concomitant]
     Indication: PROPHYLAXIS
     Dates: start: 20060605
  13. LAMIVUDINE + ZIDOVUDINE [Concomitant]
     Indication: HIV INFECTION
     Route: 048
     Dates: start: 20060610

REACTIONS (8)
  - COUGH [None]
  - DYSPNOEA [None]
  - MALAISE [None]
  - PALLOR [None]
  - PNEUMOCYSTIS JIROVECI PNEUMONIA [None]
  - PO2 DECREASED [None]
  - PYREXIA [None]
  - TACHYPNOEA [None]
